FAERS Safety Report 20992137 (Version 1)
Quarter: 2022Q2

REPORT INFORMATION
  Report Type: Spontaneous
  Country: US (occurrence: None)
  Receive Date: 20220621
  Receipt Date: 20220621
  Transmission Date: 20220721
  Serious: No
  Sender: FDA-Public Use
  Company Number: None

PATIENT
  Sex: Female

DRUGS (1)
  1. HUMIRA [Suspect]
     Active Substance: ADALIMUMAB
     Indication: Ankylosing spondylitis
     Dosage: FREQUENCY : DAILY;?
     Route: 058
     Dates: start: 20220304

REACTIONS (4)
  - Therapy interrupted [None]
  - Infection [None]
  - Back pain [None]
  - Neck pain [None]
